FAERS Safety Report 10860702 (Version 2)
Quarter: 2015Q1

REPORT INFORMATION
  Report Type: Report from Study
  Country: US (occurrence: US)
  Receive Date: 20150224
  Receipt Date: 20150305
  Transmission Date: 20150721
  Serious: Yes (Hospitalization)
  Sender: FDA-Public Use
  Company Number: US-ACTELION-A-NJ2015-113091

PATIENT
  Age: 58 Year
  Sex: Female

DRUGS (24)
  1. NORVIR [Concomitant]
     Active Substance: RITONAVIR
     Dosage: 100 MG, QD
     Route: 048
  2. SPIRIVA [Concomitant]
     Active Substance: TIOTROPIUM BROMIDE MONOHYDRATE
     Dosage: 18 MCG, UNK
     Route: 055
     Dates: start: 20130327
  3. SYNTHROID [Concomitant]
     Active Substance: LEVOTHYROXINE SODIUM
     Dosage: 75 MCG, QD
  4. MUPIROCIN. [Concomitant]
     Active Substance: MUPIROCIN
     Dosage: UNK, 2%
     Route: 061
     Dates: start: 20140703
  5. TRIAMCINOLONE ACETATE [Concomitant]
     Active Substance: TRIAMCINOLONE ACETONIDE
     Dosage: UNK
     Route: 061
     Dates: start: 20131107
  6. ESTRADIOL. [Concomitant]
     Active Substance: ESTRADIOL
     Dosage: 0.5 MG, QD
     Dates: start: 20090227
  7. LOSARTAN [Concomitant]
     Active Substance: LOSARTAN
     Dosage: 25 MG, QD
     Dates: start: 20140521
  8. POTASSIUM CHLORIDE. [Concomitant]
     Active Substance: POTASSIUM CHLORIDE
     Dosage: 10 MEQ, BID
     Dates: start: 20120514
  9. TRACLEER [Suspect]
     Active Substance: BOSENTAN\BOSENTAN MONOHYDRATE
     Indication: COR PULMONALE CHRONIC
     Dosage: 125 MG, BID
     Route: 048
     Dates: start: 20130724
  10. CLONAZEPAM. [Concomitant]
     Active Substance: CLONAZEPAM
     Dosage: 0.5 MG, UNK
     Dates: start: 20140306
  11. ESZOPICLONE. [Concomitant]
     Active Substance: ESZOPICLONE
     Dosage: 3 MG, UNK
     Route: 048
     Dates: start: 20090227
  12. FENTANYL. [Concomitant]
     Active Substance: FENTANYL
     Dosage: 12 MCG, UNK
     Route: 062
     Dates: start: 20120831
  13. FUROSEMIDE. [Concomitant]
     Active Substance: FUROSEMIDE
     Dosage: 20 MG, BID
     Route: 048
  14. HYDROXYCHLOROQUINE [Concomitant]
     Active Substance: HYDROXYCHLOROQUINE
     Indication: RHEUMATOID ARTHRITIS
     Dosage: 200 MG, BID
     Route: 048
     Dates: start: 20051028
  15. ATOVAQUONE. [Concomitant]
     Active Substance: ATOVAQUONE
     Dosage: 10 ML, OD
     Route: 048
  16. METHYLPREDNISOLONE. [Concomitant]
     Active Substance: METHYLPREDNISOLONE
     Dosage: UNK
     Route: 030
     Dates: start: 20150108
  17. NYSTATIN. [Concomitant]
     Active Substance: NYSTATIN
     Dosage: , TID
     Dates: start: 20120426
  18. PREZISTA [Concomitant]
     Active Substance: DARUNAVIR ETHANOLATE
     Dosage: 800 MG, QD
     Route: 048
  19. TRUVADA [Concomitant]
     Active Substance: EMTRICITABINE\TENOFOVIR DISOPROXIL FUMARATE
  20. TRAMADOL [Concomitant]
     Active Substance: TRAMADOL
     Dosage: 50 MG, PRN
     Route: 048
     Dates: start: 20150130
  21. ALBUTEROL. [Concomitant]
     Active Substance: ALBUTEROL
     Dosage: UNK2.5 MG/3ML
     Route: 055
     Dates: start: 20120117
  22. DULOXETINE [Concomitant]
     Active Substance: DULOXETINE
     Dosage: 20 MG, UNK
  23. GABAPENTIN. [Concomitant]
     Active Substance: GABAPENTIN
     Dosage: 300 MG, QID
     Route: 048
     Dates: start: 20140609
  24. PRISTIQ EXTENDED RELEASE [Concomitant]
     Active Substance: DESVENLAFAXINE SUCCINATE
     Dosage: 100 MG, UNK
     Dates: start: 20130702

REACTIONS (4)
  - Alveolar osteitis [Recovering/Resolving]
  - Eye swelling [Recovering/Resolving]
  - Tooth abscess [Recovering/Resolving]
  - Tooth extraction [Recovering/Resolving]

NARRATIVE: CASE EVENT DATE: 20150123
